FAERS Safety Report 5267794-7 (Version None)
Quarter: 2007Q1

REPORT INFORMATION
  Report Type: 
  Country: None (occurrence: None)
  Receive Date: 20070316
  Receipt Date: 20070305
  Transmission Date: 20070707
  Serious: Yes (Hospitalization, Other)
  Sender: FDA-Public Use
  Company Number: US-PFIZER INC-2007017732

PATIENT
  Sex: Male
  Weight: 88.5 kg

DRUGS (4)
  1. LYRICA [Suspect]
     Indication: NEURALGIA
  2. OXYCONTIN [Concomitant]
  3. LISINOPRIL [Concomitant]
  4. HYDROCHLOROTHIAZIDE [Concomitant]

REACTIONS (4)
  - CARDIAC ARREST [None]
  - HYPOTENSION [None]
  - PNEUMONIA [None]
  - SEPSIS [None]
